FAERS Safety Report 19894408 (Version 3)
Quarter: 2022Q2

REPORT INFORMATION
  Report Type: Spontaneous
  Country: PT (occurrence: PT)
  Receive Date: 20210929
  Receipt Date: 20220421
  Transmission Date: 20220720
  Serious: Yes (Hospitalization, Other)
  Sender: FDA-Public Use
  Company Number: PT-NOVARTISPH-NVSC2021PT197003

PATIENT
  Age: 43 Year
  Sex: Female

DRUGS (14)
  1. TACROLIMUS [Suspect]
     Active Substance: TACROLIMUS
     Indication: Renal transplant
     Dosage: 6 MG, BID
     Route: 065
     Dates: start: 201612
  2. TACROLIMUS [Suspect]
     Active Substance: TACROLIMUS
     Indication: Immunosuppressant drug therapy
     Dosage: 3 MG, QD
     Route: 065
     Dates: end: 201906
  3. TACROLIMUS [Suspect]
     Active Substance: TACROLIMUS
     Dosage: 3 TO 5 MG PER DAY WITHOUT ANY MODIFICATION
     Route: 065
  4. TACROLIMUS [Suspect]
     Active Substance: TACROLIMUS
     Dosage: 0.5 MG, QD
     Route: 065
  5. TACROLIMUS [Suspect]
     Active Substance: TACROLIMUS
     Dosage: 5 MG, QD
     Route: 065
     Dates: start: 201906, end: 201906
  6. TACROLIMUS [Suspect]
     Active Substance: TACROLIMUS
     Dosage: 5 MG, QD (5 MG, PER DAY)
     Route: 065
     Dates: start: 201906, end: 201909
  7. TACROLIMUS [Suspect]
     Active Substance: TACROLIMUS
     Dosage: 4 MG, QD
     Route: 065
     Dates: start: 201909, end: 201910
  8. TACROLIMUS [Suspect]
     Active Substance: TACROLIMUS
     Dosage: 3 MG, QD
     Route: 065
     Dates: start: 201910, end: 201911
  9. TACROLIMUS [Suspect]
     Active Substance: TACROLIMUS
     Dosage: 2 MG, QD
     Route: 065
     Dates: start: 201911
  10. PREDNISOLONE [Concomitant]
     Active Substance: PREDNISOLONE
     Indication: Renal transplant
     Dosage: 5MG/DAY
     Route: 065
     Dates: start: 201612
  11. PREDNISOLONE [Concomitant]
     Active Substance: PREDNISOLONE
     Indication: Immunosuppressant drug therapy
  12. MYCOPHENOLATE MOFETIL [Concomitant]
     Active Substance: MYCOPHENOLATE MOFETIL
     Indication: Renal transplant
     Dosage: 1 G, QD
     Route: 065
  13. MYCOPHENOLATE MOFETIL [Concomitant]
     Active Substance: MYCOPHENOLATE MOFETIL
     Indication: Immunosuppressant drug therapy
     Dosage: 2 MG, QD
     Route: 065
  14. MYCOPHENOLATE MOFETIL [Concomitant]
     Active Substance: MYCOPHENOLATE MOFETIL
     Dosage: 2 G, QD
     Route: 065
     Dates: start: 201612

REACTIONS (8)
  - Psychotic disorder [Recovered/Resolved]
  - Paranoia [Recovered/Resolved]
  - Toxicity to various agents [Recovered/Resolved]
  - Agitation [Recovered/Resolved]
  - Anxiety [Recovered/Resolved]
  - Tremor [Recovered/Resolved]
  - Terminal insomnia [Recovered/Resolved]
  - Extrapyramidal disorder [Unknown]

NARRATIVE: CASE EVENT DATE: 20190601
